FAERS Safety Report 10009552 (Version 1)
Quarter: 2014Q1

REPORT INFORMATION
  Report Type: Spontaneous
  Country: US (occurrence: US)
  Receive Date: 20140312
  Receipt Date: 20140312
  Transmission Date: 20141002
  Serious: No
  Sender: FDA-Public Use
  Company Number: US-INCYTE CORPORATION-2012IN001620

PATIENT
  Age: 87 Year
  Sex: Female

DRUGS (6)
  1. JAKAFI [Suspect]
     Indication: MYELOFIBROSIS
     Dosage: 10 MG, BID
     Route: 048
     Dates: start: 20120328, end: 20120727
  2. JAKAFI [Suspect]
     Indication: SPLENOMEGALY
     Dosage: 5 MG, TWICE WEEKLY
     Dates: start: 20120830
  3. ATENOLOL [Concomitant]
     Dosage: 100 MG, QD
  4. HYDROCHLOROTHIAZIDE [Concomitant]
     Dosage: 25 MG, SUN + WED
  5. ASPIRIN [Concomitant]
     Dosage: 325 MG, QD
  6. CREON [Concomitant]
     Dosage: 12000 IU, UNK

REACTIONS (2)
  - Diarrhoea [Recovered/Resolved]
  - Anaemia [Unknown]
